FAERS Safety Report 6640392-6 (Version None)
Quarter: 2010Q1

REPORT INFORMATION
  Report Type: 
  Country: None (occurrence: None)
  Receive Date: 20100303
  Receipt Date: 20090327
  Transmission Date: 20100710
  Serious: Yes (Other)
  Sender: FDA-Public Use
  Company Number: 624468

PATIENT
  Age: 74 Year
  Sex: Female
  Weight: 73.3 kg

DRUGS (6)
  1. BONIVA [Suspect]
     Indication: OSTEOPOROSIS
     Dosage: 3 MG 1 PER 3 MONTH INTRAVENOUS
     Route: 042
     Dates: start: 20090210, end: 20090216
  2. XANAX [Concomitant]
  3. PROTONIX [Concomitant]
  4. JANUMET (METFORMIN/SITAGLIPTIN) [Concomitant]
  5. WELCHOL [Concomitant]
  6. PRAVASTATIN SODIUM [Concomitant]

REACTIONS (1)
  - INJECTION SITE PAIN [None]
